FAERS Safety Report 21092429 (Version 1)
Quarter: 2022Q3

REPORT INFORMATION
  Report Type: Other
  Country: FR (occurrence: FR)
  Receive Date: 20220718
  Receipt Date: 20220718
  Transmission Date: 20221027
  Serious: Yes (Hospitalization)
  Sender: FDA-Public Use
  Company Number: FR-TOLMAR, INC.-20FR024580

PATIENT
  Age: 65 Year
  Sex: Male
  Weight: 190 kg

DRUGS (1)
  1. ELIGARD [Suspect]
     Active Substance: LEUPROLIDE ACETATE
     Indication: Prostate cancer
     Dosage: UNK

REACTIONS (1)
  - Neuroendocrine tumour of the lung [Recovering/Resolving]

NARRATIVE: CASE EVENT DATE: 20200812
